FAERS Safety Report 19386785 (Version 1)
Quarter: 2021Q2

REPORT INFORMATION
  Report Type: Spontaneous
  Country: CA (occurrence: CA)
  Receive Date: 20210608
  Receipt Date: 20210608
  Transmission Date: 20210717
  Serious: Yes (Hospitalization)
  Sender: FDA-Public Use
  Company Number: CA-JNJFOC-20210605993

PATIENT
  Age: 83 Year
  Sex: Female
  Weight: 83 kg

DRUGS (10)
  1. LORAZEPAM. [Concomitant]
     Active Substance: LORAZEPAM
     Route: 065
  2. ZOLEDRONIC ACID MONOHYDRATE [Concomitant]
     Active Substance: ZOLEDRONIC ACID
  3. ASA [Concomitant]
     Active Substance: ASPIRIN
     Route: 065
  4. METHOTREXATE. [Concomitant]
     Active Substance: METHOTREXATE
     Route: 058
  5. OLODATEROL HYDROCHLORIDE;TIOTROPIUM BROMIDE MONOHYDRATE [Concomitant]
     Active Substance: OLODATEROL HYDROCHLORIDE\TIOTROPIUM BROMIDE MONOHYDRATE
  6. INFLIXIMAB, RECOMBINANT [Suspect]
     Active Substance: INFLIXIMAB
     Indication: RHEUMATOID ARTHRITIS
     Route: 042
  7. ESOMEPRAZOLE. [Concomitant]
     Active Substance: ESOMEPRAZOLE MAGNESIUM
     Route: 065
  8. FOLIC ACID. [Concomitant]
     Active Substance: FOLIC ACID
     Route: 065
  9. AMLODIPINE [Concomitant]
     Active Substance: AMLODIPINE BESYLATE
     Route: 065
  10. ATORVASTATIN [Concomitant]
     Active Substance: ATORVASTATIN
     Route: 065

REACTIONS (11)
  - Fall [Unknown]
  - Red blood cell sedimentation rate increased [Unknown]
  - Off label use [Unknown]
  - Joint swelling [Unknown]
  - Musculoskeletal discomfort [Unknown]
  - C-reactive protein increased [Unknown]
  - Clavicle fracture [Unknown]
  - Weight decreased [Unknown]
  - Condition aggravated [Unknown]
  - Hand deformity [Unknown]
  - Rib fracture [Unknown]
